FAERS Safety Report 21018099 (Version 2)
Quarter: 2022Q3

REPORT INFORMATION
  Report Type: Spontaneous
  Country: US (occurrence: US)
  Receive Date: 20220628
  Receipt Date: 20220920
  Transmission Date: 20221026
  Serious: No
  Sender: FDA-Public Use
  Company Number: US-BRISTOL-MYERS SQUIBB COMPANY-2022-064532

PATIENT
  Age: 68 Year
  Sex: Female
  Weight: 80.28 kg

DRUGS (2)
  1. POMALYST [Suspect]
     Active Substance: POMALIDOMIDE
     Indication: Plasma cell myeloma
     Dosage: FREQ - 3W,1W OFF
     Route: 048
     Dates: start: 20210301, end: 20220622
  2. POMALYST [Suspect]
     Active Substance: POMALIDOMIDE
     Dosage: 3W, 1W OFF
     Route: 048
     Dates: start: 20220709

REACTIONS (3)
  - Platelet count decreased [Unknown]
  - White blood cell count decreased [Unknown]
  - Full blood count decreased [Unknown]
